FAERS Safety Report 6836355-8 (Version None)
Quarter: 2010Q3

REPORT INFORMATION
  Report Type: 
  Country: None (occurrence: None)
  Receive Date: 20100712
  Receipt Date: 20100712
  Transmission Date: 20110219
  Serious: Yes (Death)
  Sender: FDA-Public Use
  Company Number: None

PATIENT
  Age: 80 Year
  Sex: Female
  Weight: 58.9676 kg

DRUGS (1)
  1. LISINOPRIL [Suspect]
     Indication: CARDIAC FAILURE CONGESTIVE
     Dates: start: 20100617, end: 20100619

REACTIONS (6)
  - APHASIA [None]
  - JAW DISORDER [None]
  - LIP SWELLING [None]
  - LOCAL SWELLING [None]
  - OEDEMA MOUTH [None]
  - RESPIRATORY ARREST [None]
